FAERS Safety Report 12988129 (Version 1)
Quarter: 2016Q4

REPORT INFORMATION
  Report Type: Report from Study
  Country: US (occurrence: US)
  Receive Date: 20161130
  Receipt Date: 20161130
  Transmission Date: 20170207
  Serious: Yes (Other)
  Sender: FDA-Public Use
  Company Number: US-ROCHE-1837642

PATIENT
  Age: 67 Year
  Sex: Female
  Weight: 50.9 kg

DRUGS (6)
  1. BEVACIZUMAB [Suspect]
     Active Substance: BEVACIZUMAB
     Indication: OVARIAN EPITHELIAL CANCER
     Dosage: COURSE ID 1
     Route: 042
     Dates: start: 20151001
  2. BEVACIZUMAB [Suspect]
     Active Substance: BEVACIZUMAB
     Dosage: COURSE ID 2
     Route: 042
     Dates: start: 20151030
  3. VELIPARIB [Suspect]
     Active Substance: VELIPARIB
     Indication: OVARIAN EPITHELIAL CANCER
     Dosage: COURSE ID 1
     Route: 048
     Dates: start: 20151001
  4. VELIPARIB [Suspect]
     Active Substance: VELIPARIB
     Dosage: COURSE ID 2
     Route: 048
     Dates: start: 20151030
  5. BEVACIZUMAB [Suspect]
     Active Substance: BEVACIZUMAB
     Dosage: COURSE ID 3
     Route: 042
     Dates: start: 20151119
  6. VELIPARIB [Suspect]
     Active Substance: VELIPARIB
     Dosage: COURSE ID 3
     Route: 048
     Dates: start: 20151119

REACTIONS (5)
  - Hypertension [Unknown]
  - White blood cell count decreased [Unknown]
  - Fatigue [Unknown]
  - Neutrophil count decreased [Unknown]
  - Anaemia [Unknown]
